FAERS Safety Report 4539632-9 (Version None)
Quarter: 2004Q4

REPORT INFORMATION
  Report Type: 
  Country: None (occurrence: None)
  Receive Date: 20041228
  Receipt Date: 20041222
  Transmission Date: 20050328
  Serious: Yes (Life-Threatening, Hospitalization, Disabling)
  Sender: FDA-Public Use
  Company Number: US-MERCK-0412USA02747

PATIENT
  Age: 55 Year
  Sex: Female

DRUGS (6)
  1. FOSAMAX [Suspect]
     Indication: OSTEOPOROSIS
     Route: 048
     Dates: start: 20040901
  2. PREMPRO [Concomitant]
     Route: 065
  3. PAXIL [Concomitant]
     Route: 065
  4. NEURONTIN [Concomitant]
     Route: 065
  5. SEROQUEL [Concomitant]
     Route: 065
  6. TRAZODONE HYDROCHLORIDE [Concomitant]
     Route: 065

REACTIONS (1)
  - LARGE INTESTINAL ULCER [None]
